FAERS Safety Report 9513188 (Version 1)
Quarter: 2013Q3

REPORT INFORMATION
  Report Type: Spontaneous
  Country: BR (occurrence: BR)
  Receive Date: 20130910
  Receipt Date: 20130910
  Transmission Date: 20140515
  Serious: Yes (Other)
  Sender: FDA-Public Use
  Company Number: BR-PFIZER INC-2013255490

PATIENT
  Age: 70 Year
  Sex: Female

DRUGS (2)
  1. OLMETEC HCT [Suspect]
     Indication: BLOOD PRESSURE
     Dosage: 40 MG/12.5 MG
     Route: 048
     Dates: start: 20090903
  2. LIPITOR [Suspect]
     Indication: BLOOD CHOLESTEROL
     Dosage: 20 MG, 1X/DAY
     Route: 048
     Dates: start: 20130303

REACTIONS (3)
  - Blood pressure inadequately controlled [Unknown]
  - Feeling abnormal [Unknown]
  - Peripheral coldness [Unknown]
